FAERS Safety Report 17968976 (Version 2)
Quarter: 2022Q2

REPORT INFORMATION
  Report Type: Spontaneous
  Country: US (occurrence: US)
  Receive Date: 20200701
  Receipt Date: 20220614
  Transmission Date: 20220721
  Serious: No
  Sender: FDA-Public Use
  Company Number: US-PFM-2019-06770

PATIENT
  Age: 0 Year
  Sex: Female

DRUGS (2)
  1. HEMANGEOL [Suspect]
     Active Substance: PROPRANOLOL HYDROCHLORIDE
     Indication: Infantile haemangioma
     Dosage: 2.5 ML, BID (2/DAY)
     Route: 048
     Dates: start: 201901
  2. SODIUM FLUORIDE\STANNOUS FLUORIDE [Concomitant]
     Active Substance: SODIUM FLUORIDE\STANNOUS FLUORIDE
     Indication: Product used for unknown indication

REACTIONS (10)
  - Nasopharyngitis [Unknown]
  - Crying [Unknown]
  - Screaming [Unknown]
  - Discomfort [Unknown]
  - Sleep terror [Unknown]
  - Peripheral coldness [Unknown]
  - Vomiting [Unknown]
  - Product dose omission issue [Unknown]
  - Off label use [Unknown]
  - Product use issue [Unknown]

NARRATIVE: CASE EVENT DATE: 20190513
